FAERS Safety Report 24646650 (Version 1)
Quarter: 2024Q4

REPORT INFORMATION
  Report Type: Spontaneous
  Country: US (occurrence: None)
  Receive Date: 20241120
  Receipt Date: 20241120
  Transmission Date: 20250115
  Serious: No
  Sender: Public
  Company Number: None

PATIENT
  Age: 73 Year
  Sex: Male

DRUGS (1)
  1. TESTOSTERONE PROPIONATE [Suspect]
     Active Substance: TESTOSTERONE PROPIONATE
     Indication: Blood testosterone decreased
     Route: 030

REACTIONS (3)
  - Anxiety [None]
  - Hypogonadism [None]
  - Drug ineffective [None]

NARRATIVE: CASE EVENT DATE: 20240906
